FAERS Safety Report 23937129 (Version 2)
Quarter: 2024Q2

REPORT INFORMATION
  Report Type: Spontaneous
  Country: US (occurrence: US)
  Receive Date: 20240604
  Receipt Date: 20240605
  Transmission Date: 20240716
  Serious: Yes (Other)
  Sender: FDA-Public Use
  Company Number: US-PFIZER INC-202201031613

PATIENT
  Age: 76 Year
  Sex: Female
  Weight: 89.36 kg

DRUGS (2)
  1. DEPO-ESTRADIOL [Suspect]
     Active Substance: ESTRADIOL CYPIONATE
     Indication: Hot flush
     Dosage: 5 MG, MONTHLY (5MG VIAL INJECTED ONCE A MONTH)
     Dates: start: 1996
  2. DEPO-ESTRADIOL [Suspect]
     Active Substance: ESTRADIOL CYPIONATE
     Dosage: 1MG BY INJECTION EVERY 30 DAYS
     Dates: start: 1996

REACTIONS (7)
  - Lower limb fracture [Unknown]
  - Drug ineffective [Unknown]
  - Product dose omission issue [Unknown]
  - Product prescribing error [Unknown]
  - Product supply issue [Unknown]
  - Weight increased [Unknown]
  - Full blood count abnormal [Unknown]

NARRATIVE: CASE EVENT DATE: 20220706
